FAERS Safety Report 24303360 (Version 1)
Quarter: 2024Q3

REPORT INFORMATION
  Report Type: Spontaneous
  Country: CA (occurrence: CA)
  Receive Date: 20240910
  Receipt Date: 20240910
  Transmission Date: 20241016
  Serious: Yes (Hospitalization, Disabling, Other)
  Sender: COVIS PHARMA
  Company Number: CA-Covis Pharma Europe B.V.-2024COV01104

PATIENT
  Age: 80 Year
  Sex: Male
  Weight: 89 kg

DRUGS (29)
  1. ACLIDINIUM BROMIDE\FORMOTEROL FUMARATE [Suspect]
     Active Substance: ACLIDINIUM BROMIDE\FORMOTEROL FUMARATE
  2. CICLESONIDE [Suspect]
     Active Substance: CICLESONIDE
  3. ACETYLCYSTEINE [Suspect]
     Active Substance: ACETYLCYSTEINE
  4. ASPIRIN [Suspect]
     Active Substance: ASPIRIN
  5. AMLODIPINE BESYLATE [Suspect]
     Active Substance: AMLODIPINE BESYLATE
  6. AZITHROMYCIN [Suspect]
     Active Substance: AZITHROMYCIN
  7. BUDESONIDE [Suspect]
     Active Substance: BUDESONIDE
  8. BUDESONIDE\FORMOTEROL [Suspect]
     Active Substance: BUDESONIDE\FORMOTEROL
  9. BUDESONIDE\FORMOTEROL [Suspect]
     Active Substance: BUDESONIDE\FORMOTEROL
  10. BUDESONIDE\FORMOTEROL [Suspect]
     Active Substance: BUDESONIDE\FORMOTEROL
  11. BUDESONIDE\FORMOTEROL [Suspect]
     Active Substance: BUDESONIDE\FORMOTEROL
  12. BUDESONIDE\FORMOTEROL [Suspect]
     Active Substance: BUDESONIDE\FORMOTEROL
  13. DOXYCYCLINE [Suspect]
     Active Substance: DOXYCYCLINE\DOXYCYCLINE HYCLATE
  14. LEVOFLOXACIN [Suspect]
     Active Substance: LEVOFLOXACIN
  15. MELATONIN [Suspect]
     Active Substance: MELATONIN
  16. MESALAMINE [Suspect]
     Active Substance: MESALAMINE
  17. NAPROXEN [Suspect]
     Active Substance: NAPROXEN
  18. PREDNISONE [Suspect]
     Active Substance: PREDNISONE
  19. PREVNAR 13 [Suspect]
     Active Substance: STREPTOCOCCUS PNEUMONIAE TYPE 1 CAPSULAR POLYSACCHARIDE DIPHTHERIA CRM197 PROTEIN CONJUGATE ANTIGEN\
  20. RAMIPRIL [Suspect]
     Active Substance: RAMIPRIL
  21. ROSUVASTATIN [Suspect]
     Active Substance: ROSUVASTATIN\ROSUVASTATIN CALCIUM
  22. ALBUTEROL SULFATE [Suspect]
     Active Substance: ALBUTEROL SULFATE
  23. SPIRIVA [Suspect]
     Active Substance: TIOTROPIUM BROMIDE MONOHYDRATE
  24. TAMSULOSIN HYDROCHLORIDE [Suspect]
     Active Substance: TAMSULOSIN HYDROCHLORIDE
  25. AMLODIPINE [Suspect]
     Active Substance: AMLODIPINE BESYLATE
  26. PANTOPRAZOLE SODIUM [Suspect]
     Active Substance: PANTOPRAZOLE SODIUM
  27. PREGABALIN [Suspect]
     Active Substance: PREGABALIN
  28. TIOTROPIUM [Suspect]
     Active Substance: TIOTROPIUM
  29. TIOTROPIUM [Suspect]
     Active Substance: TIOTROPIUM

REACTIONS (8)
  - Benign prostatic hyperplasia [Unknown]
  - Breath sounds abnormal [Unknown]
  - Bronchiectasis [Unknown]
  - Chronic obstructive pulmonary disease [Unknown]
  - Congenital hiatus hernia [Unknown]
  - Full blood count abnormal [Unknown]
  - Malignant melanoma in situ [Unknown]
  - Transient ischaemic attack [Unknown]
